FAERS Safety Report 22031596 (Version 1)
Quarter: 2023Q1

REPORT INFORMATION
  Report Type: Other
  Country: US (occurrence: US)
  Receive Date: 20230224
  Receipt Date: 20230224
  Transmission Date: 20230417
  Serious: No
  Sender: FDA-Public Use
  Company Number: US-GBT-020235

PATIENT
  Age: 33 Year
  Sex: Female

DRUGS (4)
  1. OXBRYTA [Suspect]
     Active Substance: VOXELOTOR
     Indication: Sickle cell disease
  2. ENDARI [Concomitant]
     Active Substance: GLUTAMINE
  3. ADAKVEO [Concomitant]
     Active Substance: CRIZANLIZUMAB-TMCA
  4. HYDROXYUREA [Concomitant]
     Active Substance: HYDROXYUREA

REACTIONS (3)
  - Headache [Unknown]
  - Therapy cessation [Unknown]
  - Product use issue [Unknown]
